FAERS Safety Report 10244661 (Version 1)
Quarter: 2014Q2

REPORT INFORMATION
  Report Type: Spontaneous
  Country: GB (occurrence: GB)
  Receive Date: 20140618
  Receipt Date: 20140618
  Transmission Date: 20141212
  Serious: Yes (Death, Hospitalization)
  Sender: FDA-Public Use
  Company Number: GB-BRISTOL-MYERS SQUIBB COMPANY-20984266

PATIENT
  Age: 78 Year
  Sex: Male
  Weight: 75 kg

DRUGS (20)
  1. YERVOY [Suspect]
     Indication: MALIGNANT MELANOMA
  2. ALLOPURINOL [Concomitant]
  3. ATORVASTATIN [Concomitant]
  4. BUDENOSIDE [Concomitant]
  5. CODEINE [Concomitant]
  6. DALTEPARIN [Concomitant]
  7. ENOXAPARIN [Concomitant]
  8. ISOSORBIDE MONONITRATE [Concomitant]
  9. METHYLPREDNISOLONE [Concomitant]
  10. METRONIDAZOLE [Concomitant]
  11. NICORANDIL [Concomitant]
  12. OMEPRAZOLE [Concomitant]
  13. PARACETAMOL [Concomitant]
  14. PIPERACILLIN + TAZOBACTAM [Concomitant]
  15. QUININE SULFATE [Concomitant]
  16. RAMIPRIL [Concomitant]
  17. ZOPICLONE [Concomitant]
  18. CALCICHEW D3 [Concomitant]
  19. DIFFLAM [Concomitant]
  20. TILDIEM [Concomitant]

REACTIONS (3)
  - Death [Fatal]
  - Colitis [Not Recovered/Not Resolved]
  - Intestinal perforation [Not Recovered/Not Resolved]
